FAERS Safety Report 6024651-6 (Version None)
Quarter: 2008Q4

REPORT INFORMATION
  Report Type: 
  Country: None (occurrence: None)
  Receive Date: 20081231
  Receipt Date: 20081229
  Transmission Date: 20090506
  Serious: Yes (Death, Life-Threatening, Hospitalization, Disabling)
  Sender: FDA-Public Use
  Company Number: DE-BRISTOL-MYERS SQUIBB COMPANY-14456859

PATIENT
  Age: 60 Year
  Sex: Female
  Weight: 79 kg

DRUGS (5)
  1. CARMUSTINE [Suspect]
     Route: 042
     Dates: start: 20080530, end: 20080531
  2. FLUDARABINE PHOSPHATE [Suspect]
     Route: 042
     Dates: start: 20080530, end: 20080602
  3. MELPHALAN [Suspect]
     Route: 042
     Dates: start: 20080602, end: 20080602
  4. CERTICAN [Concomitant]
     Indication: STEM CELL TRANSPLANT
     Dosage: FORMULATION-TABS;REG#2 - (2.5G)22JUL08;REG#3-(1G)23-31JUL08(9DAYS);REG#4-(0.5G)01AUG08
     Dates: start: 20080603
  5. MYFORTIC [Concomitant]
     Indication: STEM CELL TRANSPLANT
     Dosage: FORMULATION-TABS;REG#2 - (2.5G)22JUL08;REG#3-(1G)23-31JUL08(9DAYS);REG#4-(0.5G)01AUG08
     Dates: start: 20080603

REACTIONS (3)
  - ACUTE GRAFT VERSUS HOST DISEASE [None]
  - OBLITERATIVE BRONCHIOLITIS [None]
  - RESPIRATORY FAILURE [None]
